FAERS Safety Report 12268616 (Version 3)
Quarter: 2016Q2

REPORT INFORMATION
  Report Type: Spontaneous
  Country: US (occurrence: US)
  Receive Date: 20160414
  Receipt Date: 20160601
  Transmission Date: 20160815
  Serious: No
  Sender: FDA-Public Use
  Company Number: US-LUNDBECK-DKLU2012092

PATIENT
  Sex: Female

DRUGS (6)
  1. NORTHERA [Suspect]
     Active Substance: DROXIDOPA
     Dosage: ON TITRATION SCHEDULE A
     Route: 065
     Dates: start: 20160404
  2. NORTHERA [Suspect]
     Active Substance: DROXIDOPA
     Dosage: ON TITRATION SCHEDULE A
     Route: 065
  3. NORTHERA [Suspect]
     Active Substance: DROXIDOPA
     Route: 065
  4. NORTHERA [Suspect]
     Active Substance: DROXIDOPA
     Indication: DIZZINESS
     Dosage: ON TITRATION SCHEDULE A
     Route: 065
     Dates: start: 20160329
  5. NORTHERA [Suspect]
     Active Substance: DROXIDOPA
     Dosage: ON TITRATION SCHEDULE A
     Route: 065
     Dates: start: 20160404
  6. NORTHERA [Suspect]
     Active Substance: DROXIDOPA
     Route: 065

REACTIONS (5)
  - Headache [Recovered/Resolved]
  - Blood pressure increased [Not Recovered/Not Resolved]
  - Hypotension [Unknown]
  - Drug ineffective [Unknown]
  - Dizziness [Recovered/Resolved]
